FAERS Safety Report 4693952-6 (Version None)
Quarter: 2005Q2

REPORT INFORMATION
  Report Type: 
  Country: None (occurrence: None)
  Receive Date: 20050616
  Receipt Date: 20050602
  Transmission Date: 20051028
  Serious: Yes (Other)
  Sender: FDA-Public Use
  Company Number: 053-05

PATIENT
  Age: 2 Year
  Sex: Female
  Weight: 12.7007 kg

DRUGS (2)
  1. ISONIAZID [Suspect]
     Indication: TUBERCULOSIS
     Dosage: 1/2 TAB BY MOUTH DAILY
  2. VITAMIB B6 [Concomitant]

REACTIONS (2)
  - INSOMNIA [None]
  - IRRITABILITY [None]
